FAERS Safety Report 9855734 (Version 1)
Quarter: 2014Q1

REPORT INFORMATION
  Report Type: Spontaneous
  Country: US (occurrence: None)
  Receive Date: 20140129
  Receipt Date: 20140129
  Transmission Date: 20141002
  Serious: Yes (Hospitalization)
  Sender: FDA-Public Use
  Company Number: None

PATIENT
  Age: 28 Year
  Sex: Female
  Weight: 95.71 kg

DRUGS (1)
  1. PROAIR [Suspect]
     Indication: DYSPNOEA
     Route: 055
     Dates: start: 20131213, end: 20140128

REACTIONS (2)
  - Asthma [None]
  - Drug effect decreased [None]
